FAERS Safety Report 18860792 (Version 2)
Quarter: 2021Q1

REPORT INFORMATION
  Report Type: Spontaneous
  Country: HK (occurrence: HK)
  Receive Date: 20210208
  Receipt Date: 20210208
  Transmission Date: 20210420
  Serious: Yes (Life-Threatening, Hospitalization, Other)
  Sender: FDA-Public Use
  Company Number: HK-SERVIER-S21000890

PATIENT

DRUGS (6)
  1. ONCASPAR [Suspect]
     Active Substance: PEGASPARGASE
     Dosage: 2325 IU, ONE DOSE
     Route: 042
     Dates: start: 20210109, end: 20210109
  2. TN UNSPECIFIED [ESOMEPRAZOLE SODIUM] [Concomitant]
     Active Substance: ESOMEPRAZOLE SODIUM
     Indication: GASTRITIS PROPHYLAXIS
     Dosage: 20 MG, QD
     Route: 048
     Dates: start: 20210107, end: 20210111
  3. TN UNSPECIFIED [MERCAPTOPURINE] [Concomitant]
     Active Substance: MERCAPTOPURINE
     Indication: ACUTE LYMPHOCYTIC LEUKAEMIA
     Dosage: 8 MG, QD
     Route: 048
     Dates: start: 20201217, end: 20210112
  4. TN UNSPECIFIED [DEXAMETHASONE SODIUM SUCCINATE] [Concomitant]
     Active Substance: DEXAMETHASONE SODIUM SUCCINATE
     Indication: ACUTE LYMPHOCYTIC LEUKAEMIA
     Dosage: 7 MG, BID
     Route: 048
     Dates: start: 20210107, end: 20210111
  5. SEPTRIN [Concomitant]
     Active Substance: SULFAMETHOXAZOLE\TRIMETHOPRIM
     Indication: ANTIFUNGAL PROPHYLAXIS
     Dosage: 480 MG, BID
     Route: 048
     Dates: start: 20201130
  6. ONCASPAR [Suspect]
     Active Substance: PEGASPARGASE
     Indication: ACUTE LYMPHOCYTIC LEUKAEMIA
     Dosage: 2325 IU, ONE DOSE
     Route: 042
     Dates: start: 20201219, end: 20201219

REACTIONS (6)
  - Shock [Recovering/Resolving]
  - Ascites [Recovering/Resolving]
  - Renal impairment [Recovering/Resolving]
  - Pleural effusion [Recovering/Resolving]
  - Pancreatitis necrotising [Recovering/Resolving]
  - Pancreatitis acute [Recovering/Resolving]

NARRATIVE: CASE EVENT DATE: 20210109
